FAERS Safety Report 5045577-0 (Version None)
Quarter: 2006Q3

REPORT INFORMATION
  Report Type: 
  Country: None (occurrence: None)
  Receive Date: 20060707
  Receipt Date: 20050809
  Transmission Date: 20061208
  Serious: Yes (Death, Hospitalization)
  Sender: FDA-Public Use
  Company Number: CN-GILEAD-2005-0008613

PATIENT
  Sex: Male

DRUGS (1)
  1. ADEFOVIR DIPIVOXIL [Suspect]
     Indication: HEPATITIS B
     Route: 048
     Dates: start: 20030113, end: 20050729

REACTIONS (8)
  - HEPATIC FAILURE [None]
  - HYPOTENSION [None]
  - LIVER TRANSPLANT [None]
  - LUNG INFECTION [None]
  - MULTI-ORGAN FAILURE [None]
  - OLIGURIA [None]
  - POST PROCEDURAL COMPLICATION [None]
  - PROTHROMBIN TIME PROLONGED [None]
